FAERS Safety Report 5222745-6 (Version None)
Quarter: 2007Q1

REPORT INFORMATION
  Report Type: 
  Country: None (occurrence: None)
  Receive Date: 20061208
  Receipt Date: 20051223
  Transmission Date: 20070707
  Serious: Yes (Hospitalization, Other)
  Sender: FDA-Public Use
  Company Number: 2005172773

PATIENT
  Sex: Male

DRUGS (8)
  1. VIAGRA [Suspect]
     Indication: ERECTILE DYSFUNCTION
     Dosage: (25 MG, PRN)
  2. ANTIHYPERTENSIVES (ANTIHYPERTENSIVES) [Suspect]
     Indication: HYPERTENSION
     Dosage: (2 MG)
     Dates: start: 20050101, end: 20050101
  3. VERAPAMIL [Concomitant]
  4. PREDNISONE TAB [Concomitant]
  5. SEREVENT [Concomitant]
  6. ADVAIR DISKUS 100/50 [Concomitant]
  7. NITROGLYCERIN [Concomitant]
  8. OYXGEN (OXYGEN) [Concomitant]

REACTIONS (9)
  - ASTHMA [None]
  - DRUG INEFFECTIVE [None]
  - DRY MOUTH [None]
  - DYSPNOEA [None]
  - EMPHYSEMA [None]
  - LUNG DISORDER [None]
  - MYOCARDIAL INFARCTION [None]
  - STOMACH DISCOMFORT [None]
  - WEIGHT DECREASED [None]
